FAERS Safety Report 9647976 (Version 4)
Quarter: 2013Q4

REPORT INFORMATION
  Report Type: Spontaneous
  Country: US (occurrence: US)
  Receive Date: 20131028
  Receipt Date: 20131129
  Transmission Date: 20140711
  Serious: No
  Sender: FDA-Public Use
  Company Number: US-PFIZER INC-2013106847

PATIENT
  Age: 73 Year
  Sex: Male
  Weight: 127 kg

DRUGS (9)
  1. LYRICA [Suspect]
     Indication: DIABETIC NEUROPATHY
     Dosage: 75 MG, 2X/DAY
     Dates: start: 201205, end: 201310
  2. LYRICA [Suspect]
     Indication: BURNING SENSATION
  3. LYRICA [Suspect]
     Indication: NEUROPATHY PERIPHERAL
  4. NEURONTIN [Suspect]
     Dosage: UNK
  5. SIMVASTATIN [Concomitant]
     Indication: BLOOD CHOLESTEROL ABNORMAL
     Dosage: 20 MG, 2X/DAY
  6. INSULIN [Concomitant]
     Indication: DIABETES MELLITUS
     Dosage: 20 IU, 3X/DAY
  7. VIAGRA [Concomitant]
     Dosage: 100 MG, WEEKLY
     Dates: start: 2008
  8. METOPROLOL [Concomitant]
     Indication: BLOOD PRESSURE ABNORMAL
     Dosage: UNK, 2X/DAY
  9. LISINOPRIL [Concomitant]
     Indication: BLOOD PRESSURE ABNORMAL
     Dosage: UNK

REACTIONS (1)
  - Pain [Unknown]
